FAERS Safety Report 15301070 (Version 1)
Quarter: 2018Q3

REPORT INFORMATION
  Report Type: Report from Study
  Country: US (occurrence: US)
  Receive Date: 20180821
  Receipt Date: 20180821
  Transmission Date: 20181010
  Serious: Yes (Other)
  Sender: FDA-Public Use
  Company Number: US-GILEAD-2018-0357529

PATIENT
  Age: 55 Year
  Sex: Male

DRUGS (1)
  1. RANOLAZINE. [Suspect]
     Active Substance: RANOLAZINE
     Indication: ANGINA PECTORIS
     Dosage: 1000 MG, BID
     Route: 048
     Dates: start: 201108, end: 201806

REACTIONS (3)
  - Product use issue [Not Recovered/Not Resolved]
  - Coronary arterial stent insertion [Unknown]
  - Cardiac operation [Unknown]

NARRATIVE: CASE EVENT DATE: 20180530
